FAERS Safety Report 17819344 (Version 7)
Quarter: 2020Q4

REPORT INFORMATION
  Report Type: Report from Study
  Country: US (occurrence: US)
  Receive Date: 20200523
  Receipt Date: 20201122
  Transmission Date: 20210113
  Serious: Yes (Other)
  Sender: FDA-Public Use
  Company Number: NVSC2020US136162

PATIENT
  Sex: Female

DRUGS (2)
  1. XIIDRA [Suspect]
     Active Substance: LIFITEGRAST
     Route: 065
  2. XIIDRA [Suspect]
     Active Substance: LIFITEGRAST
     Indication: PRODUCT USED FOR UNKNOWN INDICATION
     Dosage: UNK
     Route: 065

REACTIONS (12)
  - Rheumatoid arthritis [Unknown]
  - Illness [Unknown]
  - Paralysis [Unknown]
  - Product dose omission issue [Unknown]
  - Hand deformity [Unknown]
  - Deafness [Unknown]
  - Eye irritation [Unknown]
  - Cardiac failure [Unknown]
  - Diplegia [Unknown]
  - Blindness [Unknown]
  - Musculoskeletal disorder [Unknown]
  - Hypoacusis [Unknown]
